FAERS Safety Report 16169702 (Version 3)
Quarter: 2020Q1

REPORT INFORMATION
  Report Type: Report from Study
  Country: CA (occurrence: CA)
  Receive Date: 20190408
  Receipt Date: 20200219
  Transmission Date: 20200409
  Serious: Yes (Hospitalization)
  Sender: FDA-Public Use
  Company Number: CA-JNJFOC-20190216639

PATIENT
  Age: 40 Year
  Sex: Male

DRUGS (2)
  1. STELARA [Suspect]
     Active Substance: USTEKINUMAB
     Route: 058
     Dates: start: 20190206, end: 20200205
  2. STELARA [Suspect]
     Active Substance: USTEKINUMAB
     Indication: CROHN^S DISEASE
     Route: 042
     Dates: start: 20190206

REACTIONS (4)
  - Gastrointestinal ulcer haemorrhage [Unknown]
  - Crohn^s disease [Unknown]
  - Device related sepsis [Unknown]
  - Post procedural infection [Unknown]

NARRATIVE: CASE EVENT DATE: 20191216
